FAERS Safety Report 12317648 (Version 12)
Quarter: 2017Q3

REPORT INFORMATION
  Report Type: Spontaneous
  Country: PE (occurrence: PE)
  Receive Date: 20160429
  Receipt Date: 20170906
  Transmission Date: 20171127
  Serious: Yes (Hospitalization, Other)
  Sender: FDA-Public Use
  Company Number: PE-SA-2016SA081805

PATIENT
  Age: 8 Year
  Sex: Male
  Weight: 29 kg

DRUGS (8)
  1. THIAMINE. [Concomitant]
     Active Substance: THIAMINE
     Indication: VITAMIN SUPPLEMENTATION
  2. ACETAMINOPHEN. [Concomitant]
     Active Substance: ACETAMINOPHEN
     Indication: PREMEDICATION
     Dates: start: 20140918
  3. PYRIDOXINE [Concomitant]
     Active Substance: PYRIDOXINE
     Indication: VITAMIN SUPPLEMENTATION
  4. CEREZYME [Suspect]
     Active Substance: IMIGLUCERASE
     Indication: GAUCHER^S DISEASE TYPE I
     Route: 041
     Dates: start: 20140918, end: 2017
  5. PREDNISONE. [Suspect]
     Active Substance: PREDNISONE
     Indication: PREMEDICATION
     Route: 048
     Dates: start: 20140918
  6. PANADOL [Suspect]
     Active Substance: ACETAMINOPHEN
     Route: 065
  7. VITAMIN B12 [Concomitant]
     Active Substance: CYANOCOBALAMIN
  8. FOLIC ACID. [Concomitant]
     Active Substance: FOLIC ACID
     Indication: VITAMIN SUPPLEMENTATION

REACTIONS (22)
  - Pallor [Recovered/Resolved]
  - Bronchitis [Recovered/Resolved]
  - Hyperhidrosis [Recovered/Resolved]
  - Platelet count decreased [Unknown]
  - Malaise [Recovered/Resolved]
  - Leukopenia [Recovering/Resolving]
  - Fatigue [Recovered/Resolved]
  - Haemoglobin decreased [Recovered/Resolved]
  - Pyrexia [Recovered/Resolved]
  - Pyrexia [Recovered/Resolved]
  - Hepatic cirrhosis [Not Recovered/Not Resolved]
  - Skin discolouration [Not Recovered/Not Resolved]
  - Peripheral swelling [Not Recovered/Not Resolved]
  - Pain in extremity [Not Recovered/Not Resolved]
  - Haemoglobin decreased [Recovered/Resolved]
  - Gait disturbance [Not Recovered/Not Resolved]
  - Hiatus hernia [Unknown]
  - Anaemia [Recovering/Resolving]
  - Viral infection [Recovered/Resolved]
  - Infection [Unknown]
  - Hepatomegaly [Recovered/Resolved]
  - Immune system disorder [Not Recovered/Not Resolved]

NARRATIVE: CASE EVENT DATE: 20140918
